FAERS Safety Report 4829892-9 (Version None)
Quarter: 2005Q4

REPORT INFORMATION
  Report Type: 
  Country: None (occurrence: None)
  Receive Date: 20051115
  Receipt Date: 20051115
  Transmission Date: 20060501
  Serious: Yes (Hospitalization)
  Sender: FDA-Public Use
  Company Number: None

PATIENT
  Sex: Male

DRUGS (10)
  1. CLOPIDOGREL BISULFATE [Suspect]
     Indication: CORONARY ARTERY DISEASE
     Dosage: 75 MG   DAILY   PO
     Route: 048
  2. CLOPIDOGREL BISULFATE [Suspect]
     Indication: STENT PLACEMENT
     Dosage: 75 MG   DAILY   PO
     Route: 048
  3. ISOSORBIDE MONONITRATE [Concomitant]
  4. LISINOPRIL [Concomitant]
  5. METOPROLOL [Concomitant]
  6. NIFEDIPINE [Concomitant]
  7. OMEPRAZOLE [Concomitant]
  8. RANITIDINE [Concomitant]
  9. SIMVASTATIN [Concomitant]
  10. ASPIRIN [Concomitant]

REACTIONS (1)
  - HAEMOPTYSIS [None]
